FAERS Safety Report 4509670-0 (Version None)
Quarter: 2004Q4

REPORT INFORMATION
  Report Type: 
  Country: None (occurrence: None)
  Receive Date: 20041124
  Receipt Date: 20041112
  Transmission Date: 20050328
  Serious: Yes (Other)
  Sender: FDA-Public Use
  Company Number: PHNU2004DE03869

PATIENT
  Sex: Female

DRUGS (4)
  1. TEGRETOL [Suspect]
     Indication: TRIGEMINAL NEURALGIA
     Dosage: WITH INTERRUPTIONS
     Route: 048
     Dates: start: 19940101, end: 20020101
  2. TEGRETOL [Suspect]
     Dosage: 200 MG, 5QD
     Route: 048
     Dates: start: 20020101
  3. LAMICTAL [Concomitant]
     Dates: start: 20020101
  4. VENLAFAXINE HCL [Concomitant]
     Dosage: 1 DF, QD
     Dates: start: 20020101

REACTIONS (2)
  - ARTHRALGIA [None]
  - OSTEOARTHRITIS [None]
